FAERS Safety Report 7996169-2 (Version None)
Quarter: 2011Q4

REPORT INFORMATION
  Report Type: 
  Country: None (occurrence: None)
  Receive Date: 20111220
  Receipt Date: 20111215
  Transmission Date: 20120403
  Serious: Yes (Death, Life-Threatening)
  Sender: FDA-Public Use
  Company Number: PHHY2011FR109750

PATIENT
  Sex: Female

DRUGS (12)
  1. LEVOTHYROXINE SODIUM [Concomitant]
     Dosage: 12.5 UG, QD
     Dates: start: 20110901
  2. FUROSEMIDE ^APS^ [Concomitant]
     Dosage: 125 MG, UNK
  3. AMITRIPTYLINE HCL [Suspect]
     Indication: DEPRESSION
     Dosage: 10 GTT, QD
     Dates: end: 20111015
  4. MIDAZOLAM HCL [Suspect]
     Dosage: 5 MG/ML, UNK
     Dates: start: 20111015, end: 20111015
  5. KETAMINE HCL [Suspect]
     Dosage: 48 MG, UNK
     Dates: start: 20111015, end: 20111015
  6. TRANSIPEG [Concomitant]
     Dates: start: 20110922
  7. ACUPAN [Concomitant]
     Dosage: 20 MG, UNK
     Dates: start: 20110901
  8. OXYCODONE HCL [Concomitant]
  9. PANTOPRAZOLE [Concomitant]
     Dosage: 40 MG, QD
     Dates: start: 20110922
  10. RITALIN [Suspect]
     Dosage: 30 MG, QD
     Dates: start: 20111008, end: 20111015
  11. METHADONE HCL [Concomitant]
     Indication: ANALGESIC THERAPY
     Dosage: 30 MG, BID
     Dates: start: 20111014
  12. NOVORAPID [Concomitant]
     Dosage: 3 IU, QD
     Dates: start: 20110922

REACTIONS (5)
  - METASTASES TO BONE [None]
  - RESPIRATORY RATE DECREASED [None]
  - PAIN [None]
  - MYDRIASIS [None]
  - OVERDOSE [None]
